FAERS Safety Report 7823233-0 (Version None)
Quarter: 2011Q4

REPORT INFORMATION
  Report Type: 
  Country: None (occurrence: None)
  Receive Date: 20111019
  Receipt Date: 20090327
  Transmission Date: 20120403
  Serious: No
  Sender: FDA-Public Use
  Company Number: 2009BI009808

PATIENT
  Sex: Female

DRUGS (4)
  1. AVONEX [Concomitant]
     Indication: MULTIPLE SCLEROSIS
     Route: 030
     Dates: start: 20090328
  2. CYMBALTA [Concomitant]
     Indication: MENTAL DISORDER
  3. TYSABRI [Suspect]
     Route: 042
     Dates: start: 20101209
  4. TYSABRI [Suspect]
     Indication: MULTIPLE SCLEROSIS
     Route: 042
     Dates: start: 20071219, end: 20081001

REACTIONS (12)
  - CONFUSIONAL STATE [None]
  - MENTAL DISORDER [None]
  - APHASIA [None]
  - MUSCULOSKELETAL DISORDER [None]
  - AMNESIA [None]
  - WEIGHT INCREASED [None]
  - ASTHENIA [None]
  - FOREIGN BODY [None]
  - MEMORY IMPAIRMENT [None]
  - NEURALGIA [None]
  - STRESS [None]
  - NAUSEA [None]
